FAERS Safety Report 25367217 (Version 1)
Quarter: 2025Q2

REPORT INFORMATION
  Report Type: Spontaneous
  Country: RU (occurrence: RU)
  Receive Date: 20250528
  Receipt Date: 20250528
  Transmission Date: 20250716
  Serious: Yes (Other)
  Sender: RANBAXY
  Company Number: RU-SUN PHARMACEUTICAL INDUSTRIES LTD-2025R1-508537

PATIENT
  Age: 14 Year
  Sex: Male

DRUGS (1)
  1. FLUVOXAMINE [Suspect]
     Active Substance: FLUVOXAMINE
     Indication: Epilepsy
     Route: 065
     Dates: start: 202201, end: 202202

REACTIONS (4)
  - Leukopenia [Recovering/Resolving]
  - Dysuria [Recovering/Resolving]
  - Sleep disorder [Recovering/Resolving]
  - Agitation [Recovering/Resolving]
